FAERS Safety Report 19900162 (Version 1)
Quarter: 2021Q3

REPORT INFORMATION
  Report Type: Spontaneous
  Country: JP (occurrence: JP)
  Receive Date: 20210930
  Receipt Date: 20210930
  Transmission Date: 20211014
  Serious: Yes (Hospitalization)
  Sender: FDA-Public Use
  Company Number: JP-MYLANLABS-2021M1066757

PATIENT
  Age: 50 Year
  Sex: Female

DRUGS (5)
  1. PREDNISOLONE. [Suspect]
     Active Substance: PREDNISOLONE
     Indication: STILL^S DISEASE
     Dosage: 30 MILLIGRAM, QD
     Route: 048
  2. PREDNISOLONE. [Suspect]
     Active Substance: PREDNISOLONE
     Dosage: 60 MILLIGRAM, QD
     Route: 048
  3. METHYLPREDNISOLONE. [Suspect]
     Active Substance: METHYLPREDNISOLONE
     Indication: STILL^S DISEASE
     Dosage: 1000 MILLIGRAM, QD, PULSE THERAPY FOR 3 DAYS; RECEIVED THREE SUCH COURSES
     Route: 042
  4. TOCILIZUMAB. [Concomitant]
     Active Substance: TOCILIZUMAB
     Indication: STILL^S DISEASE
     Route: 042
  5. BETAMETHASONE. [Suspect]
     Active Substance: BETAMETHASONE
     Indication: STILL^S DISEASE
     Route: 065

REACTIONS (1)
  - Drug ineffective [Unknown]
